FAERS Safety Report 7199585-4 (Version None)
Quarter: 2010Q4

REPORT INFORMATION
  Report Type: 
  Country: None (occurrence: None)
  Receive Date: 20101214
  Receipt Date: 20101129
  Transmission Date: 20110411
  Serious: Yes (Other)
  Sender: FDA-Public Use
  Company Number: 1000017642

PATIENT
  Age: 66 Year
  Sex: Male

DRUGS (3)
  1. CITALOPRAM HYDROBROMIDE [Suspect]
     Dosage: 20 MG (20 MG, 1 IN 1 D)
  2. AMITRIPTYLINE HYDROCHLORIDE [Suspect]
     Dosage: 150 MG (150 MG, 1 IN 1 D)
  3. MELPERONE (MELPERONE) (MELPERONE) [Concomitant]

REACTIONS (5)
  - DYSTONIA [None]
  - IMPULSIVE BEHAVIOUR [None]
  - LACERATION [None]
  - RESTLESSNESS [None]
  - SUICIDE ATTEMPT [None]
